FAERS Safety Report 6486513-X (Version None)
Quarter: 2009Q4

REPORT INFORMATION
  Report Type: 
  Country: None (occurrence: None)
  Receive Date: 20091210
  Receipt Date: 20091208
  Transmission Date: 20100525
  Serious: Yes (Hospitalization)
  Sender: FDA-Public Use
  Company Number: AU-JNJFOC-20090802702

PATIENT
  Sex: Male

DRUGS (12)
  1. REMINYL [Suspect]
     Indication: DEMENTIA ALZHEIMER'S TYPE
     Route: 048
  2. RISPERIDONE [Suspect]
     Indication: DRUG USE FOR UNKNOWN INDICATION
     Route: 065
  3. ASPIRIN [Concomitant]
     Route: 065
  4. PANTOPRAZOLE [Concomitant]
     Dosage: MANE
     Route: 065
  5. THIAMINE [Concomitant]
     Dosage: MANE
     Route: 065
  6. MULTIVIT [Concomitant]
     Route: 065
  7. PERINDOPRIL [Concomitant]
     Dosage: MANE
     Route: 065
  8. LACTULOSE [Concomitant]
     Route: 065
  9. NULYTELY [Concomitant]
     Route: 065
  10. COLOXYL SENNA [Concomitant]
     Route: 065
  11. ANTACID TAB [Concomitant]
     Route: 065
  12. ATROVENT [Concomitant]
     Route: 065

REACTIONS (2)
  - DEHYDRATION [None]
  - SYNCOPE [None]
